FAERS Safety Report 9552500 (Version 1)
Quarter: 2013Q3

REPORT INFORMATION
  Report Type: Spontaneous
  Country: US (occurrence: None)
  Receive Date: 20130923
  Receipt Date: 20130923
  Transmission Date: 20140515
  Serious: Yes (Other)
  Sender: FDA-Public Use
  Company Number: 2013AP008177

PATIENT
  Age: 26 Year
  Sex: Male

DRUGS (4)
  1. TOPIRAMATE [Suspect]
     Indication: COMPULSIVE SEXUAL BEHAVIOUR
  2. LEVETIRACETAM [Suspect]
     Indication: COMPULSIVE SEXUAL BEHAVIOUR
  3. AMPHETAMINE SALTS [Suspect]
     Indication: COGNITIVE DISORDER
  4. AMPHETAMINE SALTS [Concomitant]

REACTIONS (4)
  - Cognitive disorder [None]
  - Sedation [None]
  - Sexual dysfunction [None]
  - No therapeutic response [None]
